FAERS Safety Report 7553347-4 (Version None)
Quarter: 2011Q2

REPORT INFORMATION
  Report Type: 
  Country: None (occurrence: None)
  Receive Date: 20110617
  Receipt Date: 20110616
  Transmission Date: 20111010
  Serious: Yes (Hospitalization)
  Sender: FDA-Public Use
  Company Number: US-BRISTOL-MYERS SQUIBB COMPANY-15697691

PATIENT
  Age: 61 Year
  Sex: Male

DRUGS (1)
  1. IPILIMUMAB [Suspect]
     Indication: MALIGNANT MELANOMA
     Dosage: 3MG/KG - STRENGTH. LAST DOSE: 18AP2011
     Route: 042
     Dates: start: 20110307, end: 20110425

REACTIONS (4)
  - ANAEMIA [None]
  - HYPOXIA [None]
  - DIARRHOEA [None]
  - PYREXIA [None]
